FAERS Safety Report 6671209-1 (Version None)
Quarter: 2010Q2

REPORT INFORMATION
  Report Type: 
  Country: None (occurrence: None)
  Receive Date: 20100407
  Receipt Date: 20100325
  Transmission Date: 20101027
  Serious: Yes (Hospitalization)
  Sender: FDA-Public Use
  Company Number: GB-WATSON-2010-04202

PATIENT
  Age: 29 Year
  Sex: Female

DRUGS (3)
  1. CIPROFLOXACIN HCL [Suspect]
     Indication: SPIROMETRY ABNORMAL
     Dosage: 400 MG, BID
     Route: 042
  2. ENOXAPARIN SODIUM [Concomitant]
     Indication: THROMBOSIS
     Dosage: 1.5 MG/KG, DAILY
     Route: 058
  3. TOBRAMYCIN [Concomitant]
     Indication: SPIROMETRY ABNORMAL
     Route: 055

REACTIONS (2)
  - ACTIVATED PARTIAL THROMBOPLASTIN TIME PROLONGED [None]
  - INTERNATIONAL NORMALISED RATIO INCREASED [None]
